FAERS Safety Report 10484808 (Version 1)
Quarter: 2014Q3

REPORT INFORMATION
  Report Type: Spontaneous
  Country: US (occurrence: US)
  Receive Date: 20140930
  Receipt Date: 20140930
  Transmission Date: 20150326
  Serious: Yes (Other)
  Sender: FDA-Public Use
  Company Number: PHHY2014US127013

PATIENT
  Age: 21 Year
  Sex: Female

DRUGS (13)
  1. TETRABENAZINE [Suspect]
     Active Substance: TETRABENAZINE
     Dosage: 112.5 MG/DAY
  2. TETRABENAZINE [Suspect]
     Active Substance: TETRABENAZINE
     Indication: TOURETTE^S DISORDER
     Dosage: 150 MG/DAY
  3. GUANFACINE. [Suspect]
     Active Substance: GUANFACINE
  4. TETRABENAZINE [Suspect]
     Active Substance: TETRABENAZINE
     Dosage: 64.5 MG PER DAY
  5. BACLOFEN. [Suspect]
     Active Substance: BACLOFEN
     Indication: TOURETTE^S DISORDER
  6. ZIPRASIDONE [Suspect]
     Active Substance: ZIPRASIDONE
     Dosage: 20 MG
  7. CLONIDINE HYDROCHLORIDE. [Suspect]
     Active Substance: CLONIDINE HYDROCHLORIDE
  8. FLUPHENAZINE [Suspect]
     Active Substance: FLUPHENAZINE
     Dosage: 3 MG/DAY
  9. BENZODIAZEPINES [Suspect]
     Active Substance: BENZODIAZEPINE
  10. METHYLPHENIDATE [Suspect]
     Active Substance: METHYLPHENIDATE
  11. TOPIRAMATE. [Suspect]
     Active Substance: TOPIRAMATE
     Dosage: 225 MG/DAY
  12. METAXALONE. [Suspect]
     Active Substance: METAXALONE
  13. BOTULINUM TOXIN [Suspect]
     Active Substance: BOTULINUM TOXIN TYPE A
     Indication: COPROLALIA

REACTIONS (3)
  - Sedation [Unknown]
  - No therapeutic response [Unknown]
  - Parkinsonism [Recovering/Resolving]
